FAERS Safety Report 6589005-2 (Version None)
Quarter: 2010Q1

REPORT INFORMATION
  Report Type: 
  Country: None (occurrence: None)
  Receive Date: 20100212
  Receipt Date: 20100201
  Transmission Date: 20100710
  Serious: Yes (Other)
  Sender: FDA-Public Use
  Company Number: 497036

PATIENT
  Age: 76 Year
  Sex: Female
  Weight: 46 kg

DRUGS (3)
  1. OXALIPLATIN [Suspect]
     Indication: NEOPLASM PROGRESSION
     Dosage: 144 MG ON 19TH JANUARY 2010, INTRAVENOUS
     Route: 042
     Dates: start: 20100119, end: 20100119
  2. (CALCIUM FOLINATE) [Concomitant]
  3. (ZOPHREN /00955302/) [Concomitant]

REACTIONS (3)
  - ASTHENIA [None]
  - DERMATITIS EXFOLIATIVE [None]
  - PRURITUS [None]
